FAERS Safety Report 8904577 (Version 10)
Quarter: 2013Q4

REPORT INFORMATION
  Report Type: Spontaneous
  Country: US (occurrence: US)
  Receive Date: 20121112
  Receipt Date: 20131106
  Transmission Date: 20140711
  Serious: Yes (Hospitalization, Disabling, Other)
  Sender: FDA-Public Use
  Company Number: US-MERCK-1211USA004334

PATIENT
  Sex: Female
  Weight: 117.1 kg

DRUGS (11)
  1. FOSAMAX [Suspect]
     Indication: OSTEOPOROSIS
     Dosage: 10 MG, UNK
     Route: 048
     Dates: start: 20000914, end: 20050203
  2. FOSAMAX [Suspect]
     Dosage: 70 MG, QW
     Route: 048
     Dates: start: 20060117, end: 20111116
  3. ALENDRONATE SODIUM [Suspect]
     Dosage: 10 MG T UD WEEKLY
     Route: 048
  4. ALENDRONATE SODIUM [Suspect]
     Dosage: 70 MG, QW
     Route: 048
  5. VITAMINS (UNSPECIFIED) [Concomitant]
     Dosage: UNK UNK, QD
     Dates: start: 1992
  6. CALCIUM (UNSPECIFIED) (+) VITAMIN D (UNSPECIFIED) [Concomitant]
     Dosage: UNK, QD
     Dates: start: 2000
  7. OMEPRAZOLE [Concomitant]
     Dosage: UNK
     Dates: start: 20000314, end: 200212
  8. FERROUS SULFATE [Concomitant]
     Indication: MINERAL SUPPLEMENTATION
     Dosage: UNK
     Dates: start: 19990419, end: 20040222
  9. ESTROGENS (UNSPECIFIED) [Concomitant]
     Indication: HORMONE REPLACEMENT THERAPY
     Dosage: UNK
  10. PROTONIX [Concomitant]
     Indication: GASTROOESOPHAGEAL REFLUX DISEASE
     Dosage: UNK
     Dates: start: 20030922, end: 200412
  11. PRILOSEC [Concomitant]
     Indication: GASTROOESOPHAGEAL REFLUX DISEASE
     Dosage: UNK
     Dates: start: 20000314, end: 200212

REACTIONS (48)
  - Femur fracture [Not Recovered/Not Resolved]
  - Intramedullary rod insertion [Not Recovered/Not Resolved]
  - Surgery [Unknown]
  - Hip arthroplasty [Unknown]
  - Hip arthroplasty [Unknown]
  - Medical device complication [Unknown]
  - Wound infection staphylococcal [Unknown]
  - Procedural hypotension [Recovering/Resolving]
  - Iron deficiency anaemia [Unknown]
  - Pancytopenia [Unknown]
  - Urinary tract infection [Unknown]
  - Surgery [Unknown]
  - Low turnover osteopathy [Not Recovered/Not Resolved]
  - Incision site infection [Unknown]
  - Humerus fracture [Unknown]
  - Osteoarthritis [Unknown]
  - Inflammation [Unknown]
  - Depression [Unknown]
  - Anxiety [Unknown]
  - Pain [Unknown]
  - Drug administration error [Unknown]
  - Asthma [Unknown]
  - Hypertonic bladder [Unknown]
  - Bradycardia [Unknown]
  - Fall [Unknown]
  - Knee arthroplasty [Unknown]
  - Chronic obstructive pulmonary disease [Unknown]
  - Fibromyalgia [Unknown]
  - Osteoarthritis [Unknown]
  - Osteopenia [Unknown]
  - Sciatica [Unknown]
  - Wound infection staphylococcal [Unknown]
  - Postoperative wound complication [Unknown]
  - Debridement [Unknown]
  - Sleep apnoea syndrome [Unknown]
  - Automatic bladder [Unknown]
  - Urinary incontinence [Unknown]
  - Tonsillectomy [Unknown]
  - Hysterectomy [Unknown]
  - Salpingo-oophorectomy bilateral [Unknown]
  - Hypotension [Unknown]
  - Wound dehiscence [Unknown]
  - Pollakiuria [Unknown]
  - Treatment failure [Unknown]
  - Haemorrhagic anaemia [Unknown]
  - Oedema peripheral [Unknown]
  - Muscle spasms [Unknown]
  - Blood calcium decreased [Unknown]
